FAERS Safety Report 9007857 (Version 2)
Quarter: 2013Q1

REPORT INFORMATION
  Report Type: Spontaneous
  Country: US (occurrence: US)
  Receive Date: 20130110
  Receipt Date: 20130219
  Transmission Date: 20140127
  Serious: No
  Sender: FDA-Public Use
  Company Number: US-009507513-1301USA001676

PATIENT
  Age: 33 Year
  Sex: Female
  Weight: 49.62 kg

DRUGS (2)
  1. NEXPLANON [Suspect]
     Indication: CONTRACEPTION
     Dosage: 1 DF, UNK
     Dates: start: 20121228, end: 20121228
  2. NEXPLANON [Suspect]
     Dosage: 1 UNK, UNK
     Dates: start: 20121228

REACTIONS (3)
  - Device difficult to use [Unknown]
  - No adverse event [Unknown]
  - Product quality issue [Unknown]
